FAERS Safety Report 13833983 (Version 1)
Quarter: 2017Q3

REPORT INFORMATION
  Report Type: Spontaneous
  Country: DE (occurrence: DE)
  Receive Date: 20170804
  Receipt Date: 20170804
  Transmission Date: 20171127
  Serious: Yes (Other)
  Sender: FDA-Public Use
  Company Number: DE-ROCHE-1973323

PATIENT
  Sex: Female

DRUGS (1)
  1. XOLAIR [Suspect]
     Active Substance: OMALIZUMAB
     Indication: SENSITISATION
     Dosage: UNK
     Route: 065
     Dates: start: 2014, end: 2015

REACTIONS (4)
  - General physical health deterioration [Unknown]
  - Drug prescribing error [Unknown]
  - Off label use [Unknown]
  - Cushing^s syndrome [Unknown]
